FAERS Safety Report 14675661 (Version 3)
Quarter: 2019Q1

REPORT INFORMATION
  Report Type: Spontaneous
  Country: US (occurrence: US)
  Receive Date: 20180323
  Receipt Date: 20190129
  Transmission Date: 20190417
  Serious: Yes (Other)
  Sender: FDA-Public Use
  Company Number: US-ASTRAZENECA-2018SE33664

PATIENT
  Age: 24973 Day
  Sex: Female
  Weight: 57.2 kg

DRUGS (67)
  1. NEXIUM [Suspect]
     Active Substance: ESOMEPRAZOLE MAGNESIUM
     Indication: GASTROOESOPHAGEAL REFLUX DISEASE
     Route: 048
     Dates: start: 20141121, end: 20160815
  2. OMEPRAZOLE. [Suspect]
     Active Substance: OMEPRAZOLE
     Indication: GASTROOESOPHAGEAL REFLUX DISEASE
     Route: 065
     Dates: start: 20160901
  3. ARTHROTEC [Concomitant]
     Active Substance: DICLOFENAC SODIUM\MISOPROSTOL
  4. LYRICA [Concomitant]
     Active Substance: PREGABALIN
     Dates: start: 20080711
  5. METOCLOPRAMIDE. [Concomitant]
     Active Substance: METOCLOPRAMIDE
     Dates: start: 20080913
  6. GABAPENTIN. [Concomitant]
     Active Substance: GABAPENTIN
     Route: 048
     Dates: start: 20140221
  7. RISPERIDONE. [Concomitant]
     Active Substance: RISPERIDONE
  8. CITALOPRAM [Concomitant]
     Active Substance: CITALOPRAM HYDROBROMIDE
  9. LEVOFLOXACIN. [Concomitant]
     Active Substance: LEVOFLOXACIN
     Route: 048
     Dates: start: 20140728
  10. ARICEPT [Concomitant]
     Active Substance: DONEPEZIL HYDROCHLORIDE
  11. NEXIUM [Suspect]
     Active Substance: ESOMEPRAZOLE MAGNESIUM
     Indication: GASTROOESOPHAGEAL REFLUX DISEASE
     Route: 048
     Dates: start: 2008, end: 2014
  12. HYDROCODONE-APAP [Concomitant]
     Active Substance: ACETAMINOPHEN\HYDROCODONE
     Dosage: 10-325 MG ORAL TABLET; TAKE 1 TABLET 4 TIMES DAILY
     Route: 048
     Dates: start: 20140106
  13. DIAZEPAM. [Concomitant]
     Active Substance: DIAZEPAM
     Dates: start: 20080711
  14. FLUOXETINE [Concomitant]
     Active Substance: FLUOXETINE HYDROCHLORIDE
     Dates: start: 20100514
  15. VENTOLIN HFA [Concomitant]
     Active Substance: ALBUTEROL SULFATE
  16. ZANTAC [Concomitant]
     Active Substance: RANITIDINE HYDROCHLORIDE
  17. RANITIDINE. [Concomitant]
     Active Substance: RANITIDINE
     Dates: start: 20100514
  18. MELOXICAM. [Concomitant]
     Active Substance: MELOXICAM
     Dates: start: 20090611
  19. SIMVASTATIN. [Concomitant]
     Active Substance: SIMVASTATIN
  20. DONEPEZIL. [Concomitant]
     Active Substance: DONEPEZIL
  21. MIRTAZAPINE. [Concomitant]
     Active Substance: MIRTAZAPINE
     Route: 048
     Dates: start: 20140106
  22. CARDIZEM [Concomitant]
     Active Substance: DILTIAZEM HYDROCHLORIDE
     Dates: start: 20160722
  23. PAXIL [Concomitant]
     Active Substance: PAROXETINE HYDROCHLORIDE
  24. NEXIUM [Suspect]
     Active Substance: ESOMEPRAZOLE MAGNESIUM
     Indication: GASTROOESOPHAGEAL REFLUX DISEASE
     Route: 048
     Dates: start: 20141121
  25. PREVACID [Suspect]
     Active Substance: LANSOPRAZOLE
     Indication: GASTROOESOPHAGEAL REFLUX DISEASE
     Route: 065
     Dates: start: 20080719
  26. COMBIVENT RESPIMAT [Concomitant]
     Active Substance: ALBUTEROL SULFATE\IPRATROPIUM BROMIDE
  27. WARFARIN SODIUM. [Concomitant]
     Active Substance: WARFARIN SODIUM
     Route: 048
     Dates: start: 20120118
  28. AUGMENTIN [Concomitant]
     Active Substance: AMOXICILLIN\CLAVULANATE POTASSIUM
  29. ZOLPIDEM TARTRATE. [Concomitant]
     Active Substance: ZOLPIDEM TARTRATE
     Dates: start: 20080911
  30. MONTELUKAST SODIUM. [Concomitant]
     Active Substance: MONTELUKAST SODIUM
  31. ONDANSETRON [Concomitant]
     Active Substance: ONDANSETRON
     Route: 048
     Dates: start: 20140106
  32. OMEPRAZOLE. [Suspect]
     Active Substance: OMEPRAZOLE
     Indication: GASTROOESOPHAGEAL REFLUX DISEASE
     Dosage: 20 MG
     Route: 065
     Dates: start: 20101001, end: 201011
  33. OMEPRAZOLE. [Suspect]
     Active Substance: OMEPRAZOLE
     Indication: GASTROOESOPHAGEAL REFLUX DISEASE
     Route: 065
     Dates: start: 20101001
  34. TUMS [Concomitant]
     Active Substance: CALCIUM CARBONATE
     Dates: start: 2006, end: 2008
  35. PEPTO-BISMOL [Concomitant]
     Active Substance: BISMUTH SUBSALICYLATE
     Dates: start: 2006, end: 2008
  36. OXYCODONE W/APAP [Concomitant]
     Active Substance: ACETAMINOPHEN\OXYCODONE HYDROCHLORIDE
  37. ZYPREXA [Concomitant]
     Active Substance: OLANZAPINE
  38. FUROSEMIDE. [Concomitant]
     Active Substance: FUROSEMIDE
     Route: 048
     Dates: start: 20140106
  39. MORPHINE SULFATE. [Concomitant]
     Active Substance: MORPHINE SULFATE
  40. LISINOPRIL. [Concomitant]
     Active Substance: LISINOPRIL
     Dosage: 1 TABLET PO DAILY
     Dates: start: 20160722
  41. PREDNISONE. [Concomitant]
     Active Substance: PREDNISONE
     Dates: start: 20160722
  42. AMOXIL [Concomitant]
     Active Substance: AMOXICILLIN
     Dates: start: 20160902
  43. VITAMIN E [Concomitant]
     Active Substance: .ALPHA.-TOCOPHEROL
  44. HYDROCODONE-APAP [Concomitant]
     Active Substance: ACETAMINOPHEN\HYDROCODONE
     Dosage: 10-500
     Dates: start: 20100913
  45. ADVAIR DISKUS [Concomitant]
     Active Substance: FLUTICASONE PROPIONATE\SALMETEROL XINAFOATE
  46. LIPITOR [Concomitant]
     Active Substance: ATORVASTATIN CALCIUM
  47. CEPHALEXIN. [Concomitant]
     Active Substance: CEPHALEXIN
  48. CYMBALTA [Concomitant]
     Active Substance: DULOXETINE HYDROCHLORIDE
  49. ATROVENT HFA [Concomitant]
     Active Substance: IPRATROPIUM BROMIDE
  50. LODRANE D [Concomitant]
     Active Substance: BROMPHENIRAMINE MALEATE\PSEUDOEPHEDRINE HYDROCHLORIDE
  51. SEROQUEL [Concomitant]
     Active Substance: QUETIAPINE FUMARATE
  52. PAROXETINE. [Concomitant]
     Active Substance: PAROXETINE
  53. NYSTATIN. [Concomitant]
     Active Substance: NYSTATIN
  54. VITAMIN B12 [Concomitant]
     Active Substance: CYANOCOBALAMIN
  55. OXYBUTYNIN. [Concomitant]
     Active Substance: OXYBUTYNIN CHLORIDE
  56. PREVACID [Suspect]
     Active Substance: LANSOPRAZOLE
     Indication: GASTROOESOPHAGEAL REFLUX DISEASE
     Route: 065
     Dates: start: 2008, end: 2014
  57. PREVACID [Suspect]
     Active Substance: LANSOPRAZOLE
     Indication: GASTROOESOPHAGEAL REFLUX DISEASE
     Dosage: 30 MG
     Route: 065
     Dates: start: 20080408, end: 20091130
  58. ZOSTAVAX [Concomitant]
     Active Substance: VARICELLA-ZOSTER VIRUS STRAIN OKA/MERCK LIVE ANTIGEN
     Dates: start: 20150121
  59. SPIRIVA [Concomitant]
     Active Substance: TIOTROPIUM BROMIDE MONOHYDRATE
  60. DIGOXIN. [Concomitant]
     Active Substance: DIGOXIN
  61. SULFAMETHOXAZOLE [Concomitant]
     Active Substance: SULFAMETHOXAZOLE
  62. NEXIUM [Suspect]
     Active Substance: ESOMEPRAZOLE MAGNESIUM
     Indication: GASTROOESOPHAGEAL REFLUX DISEASE
     Route: 048
     Dates: start: 20141121
  63. PREVACID [Suspect]
     Active Substance: LANSOPRAZOLE
     Indication: GASTROOESOPHAGEAL REFLUX DISEASE
     Route: 065
     Dates: start: 20080408
  64. CYCLOBENZAPRINE. [Concomitant]
     Active Substance: CYCLOBENZAPRINE
     Dates: start: 20161031
  65. DOXYCYCLINE. [Concomitant]
     Active Substance: DOXYCYCLINE
  66. PROMETHAZINE [Concomitant]
     Active Substance: PROMETHAZINE\PROMETHAZINE HYDROCHLORIDE
  67. KLOR-CON [Concomitant]
     Active Substance: POTASSIUM CHLORIDE
     Route: 048
     Dates: start: 20140106

REACTIONS (5)
  - Chronic kidney disease [Not Recovered/Not Resolved]
  - Acute kidney injury [Not Recovered/Not Resolved]
  - Nephrogenic anaemia [Unknown]
  - Renal tubular necrosis [Unknown]
  - Renal failure [Unknown]

NARRATIVE: CASE EVENT DATE: 20151210
